FAERS Safety Report 8107138-6 (Version None)
Quarter: 2012Q1

REPORT INFORMATION
  Report Type: 
  Country: None (occurrence: None)
  Receive Date: 20120202
  Receipt Date: 20120125
  Transmission Date: 20120608
  Serious: Yes (Death, Life-Threatening)
  Sender: FDA-Public Use
  Company Number: US-ROXANE LABORATORIES, INC.-2012-RO-00544RO

PATIENT
  Age: 39 Year
  Sex: Female

DRUGS (6)
  1. DOXEPIN [Suspect]
  2. HYDROCODONE BITARTRATE AND ACETAMINOPHEN [Suspect]
     Indication: BREAKTHROUGH PAIN
  3. METHADONE HCL [Suspect]
     Indication: MUSCULOSKELETAL PAIN
     Dosage: 10 MG
  4. DIAZEPAM [Suspect]
  5. HYDROCODONE BITARTRATE AND ACETAMINOPHEN [Suspect]
     Indication: MUSCULOSKELETAL PAIN
  6. METHADONE HCL [Suspect]
     Indication: DRUG DEPENDENCE

REACTIONS (2)
  - MULTIPLE DRUG OVERDOSE [None]
  - OVERDOSE [None]
